FAERS Safety Report 8796782 (Version 1)
Quarter: 2012Q4

REPORT INFORMATION
  Report Type: 
  Country: US (occurrence: US)
  Receive Date: 20120917
  Receipt Date: 20120917
  Transmission Date: 20130627
  Serious: No
  Sender: FDA-Public Use
  Company Number: US-ASTRAZENECA-2012SE65664

PATIENT
  Age: 34 Year
  Sex: Male

DRUGS (1)
  1. SEROQUEL XR [Suspect]
     Indication: IMPULSE-CONTROL DISORDER
     Route: 048

REACTIONS (3)
  - Feeling abnormal [Unknown]
  - Off label use [Unknown]
  - Drug dose omission [Unknown]
